FAERS Safety Report 9579878 (Version 1)
Quarter: 2013Q3

REPORT INFORMATION
  Report Type: Spontaneous
  Country: US (occurrence: None)
  Receive Date: 20130930
  Receipt Date: 20130930
  Transmission Date: 20140515
  Serious: Yes (Other)
  Sender: FDA-Public Use
  Company Number: None

PATIENT
  Age: 41 Year
  Sex: Female
  Weight: 68.49 kg

DRUGS (7)
  1. AMOXICILLIN [Suspect]
     Indication: HELICOBACTER INFECTION
     Dosage: 500MG, 3 PILL, TWICE DAILY BY MOUTH
     Route: 048
     Dates: start: 20130919
  2. CLARITHROMY 500 MG [Suspect]
  3. OMEPRAZOLE [Suspect]
  4. AMOXICILIN 500 MG [Concomitant]
  5. CLARITHROMYE 500 MG [Concomitant]
  6. OMEPRAZOLE 20 MG [Concomitant]
  7. ISONIAZID 300 MG X3 ONCE A WEEK UDL ROCKFORD UM36 [Concomitant]

REACTIONS (1)
  - Rash erythematous [None]
